FAERS Safety Report 9957956 (Version 1)
Quarter: 2014Q1

REPORT INFORMATION
  Report Type: Report from Study
  Country: US (occurrence: US)
  Receive Date: 20140304
  Receipt Date: 20140304
  Transmission Date: 20141002
  Serious: No
  Sender: FDA-Public Use
  Company Number: US-ABBVIE-13P-163-1094910-00

PATIENT
  Age: 69 Year
  Sex: Female
  Weight: 59.47 kg

DRUGS (8)
  1. HUMIRA [Suspect]
     Indication: COLITIS ULCERATIVE
     Dates: start: 20130313, end: 20130313
  2. HUMIRA [Suspect]
     Dates: start: 20130327, end: 20130327
  3. HUMIRA [Suspect]
     Dates: start: 20130410
  4. ALEVE [Suspect]
     Indication: ARTHRALGIA
  5. SYNTHROID [Concomitant]
     Indication: HYPOTHYROIDISM
  6. MULTIVITAMIN [Concomitant]
     Indication: VITAMIN SUPPLEMENTATION
  7. PROTONIX [Concomitant]
     Indication: COLITIS ULCERATIVE
  8. IRON [Concomitant]
     Indication: COLITIS ULCERATIVE

REACTIONS (4)
  - Arthritis [Not Recovered/Not Resolved]
  - Chondropathy [Not Recovered/Not Resolved]
  - Arthralgia [Not Recovered/Not Resolved]
  - Rectal haemorrhage [Recovered/Resolved]
